FAERS Safety Report 14820340 (Version 1)
Quarter: 2018Q2

REPORT INFORMATION
  Report Type: Report from Study
  Country: CN (occurrence: CN)
  Receive Date: 20180427
  Receipt Date: 20180427
  Transmission Date: 20180711
  Serious: Yes (Other)
  Sender: FDA-Public Use
  Company Number: CN-MYLANLABS-2018M1026595

PATIENT
  Age: 28 Year
  Sex: Female

DRUGS (9)
  1. CYCLOSPORINE. [Concomitant]
     Active Substance: CYCLOSPORINE
     Dosage: TO ACHIEVE A BLOOD CONCENTRATION OF 200 TO 300 NG/ML FOR 90 DAYS.
     Route: 048
  2. CLADRIBINE. [Suspect]
     Active Substance: CLADRIBINE
     Indication: ACUTE MYELOID LEUKAEMIA
     Dosage: FOR 2 HOURS
     Route: 041
  3. CYCLOSPORINE. [Concomitant]
     Active Substance: CYCLOSPORINE
     Indication: PROPHYLAXIS AGAINST GRAFT VERSUS HOST DISEASE
     Dosage: ADMINISTERED FROM DAY -1 UNTIL RECOVERY OF BOWEL FUNCTION
     Route: 042
  4. METHOTREXATE. [Concomitant]
     Active Substance: METHOTREXATE
     Indication: PROPHYLAXIS AGAINST GRAFT VERSUS HOST DISEASE
     Dosage: ON DAY +1
     Route: 042
  5. BUSULFAN. [Suspect]
     Active Substance: BUSULFAN
     Indication: ACUTE MYELOID LEUKAEMIA
     Dosage: ON DAY -7 TO DAY -4 OF TRANSPLANT
     Route: 065
  6. CYTARABINE. [Suspect]
     Active Substance: CYTARABINE
     Indication: ACUTE MYELOID LEUKAEMIA
     Dosage: INFUSION, FOR 4 HOURS.
     Route: 065
  7. MITOXANTRONE [Suspect]
     Active Substance: MITOXANTRONE HYDROCHLORIDE
     Indication: ACUTE MYELOID LEUKAEMIA
     Route: 041
  8. METHOTREXATE. [Concomitant]
     Active Substance: METHOTREXATE
     Dosage: ON DAYS +3, +6 AND +11
     Route: 042
  9. CYCLOPHOSPHAMIDE. [Suspect]
     Active Substance: CYCLOPHOSPHAMIDE
     Indication: ACUTE MYELOID LEUKAEMIA
     Dosage: ON DAY -3 TO DAY -2 OF TRANSPLANT.
     Route: 065

REACTIONS (3)
  - Cardiotoxicity [Recovered/Resolved]
  - Left ventricular failure [Recovered/Resolved]
  - Febrile neutropenia [Unknown]
